FAERS Safety Report 8857540 (Version 3)
Quarter: 2012Q4

REPORT INFORMATION
  Report Type: 
  Country: JP (occurrence: JP)
  Receive Date: 20121024
  Receipt Date: 20121228
  Transmission Date: 20130627
  Serious: Yes (Hospitalization)
  Sender: FDA-Public Use
  Company Number: JP-GLAXOSMITHKLINE-B0838911A

PATIENT
  Age: 59 Year
  Sex: Male

DRUGS (4)
  1. PAXIL [Suspect]
     Indication: SLEEP DISORDER
     Dosage: 5MG Per day
     Route: 048
     Dates: start: 20121004, end: 20121011
  2. MEMARY [Concomitant]
     Dosage: 20MG Per day
     Route: 048
     Dates: start: 201208
  3. REMINYL [Concomitant]
     Dosage: 16MG Per day
     Route: 048
     Dates: start: 201208
  4. AMAZOLON [Concomitant]
     Dosage: 100MG Per day
     Route: 048
     Dates: start: 201208

REACTIONS (9)
  - Status epilepticus [Recovered/Resolved]
  - Convulsion [Unknown]
  - Cerebral atrophy [Unknown]
  - Loss of consciousness [Unknown]
  - Electroencephalogram abnormal [Unknown]
  - Headache [Unknown]
  - Disorientation [Unknown]
  - Somnolence [Unknown]
  - Epileptic aura [Unknown]
